FAERS Safety Report 10647850 (Version 2)
Quarter: 2014Q4

REPORT INFORMATION
  Report Type: Spontaneous
  Country: ES (occurrence: ES)
  Receive Date: 20141212
  Receipt Date: 20141219
  Transmission Date: 20150529
  Serious: Yes (Other)
  Sender: FDA-Public Use
  Company Number: ES-AMGEN-ESPSP2014094808

PATIENT
  Age: 79 Year
  Sex: Female
  Weight: 66 kg

DRUGS (10)
  1. AMLODIPINE [Concomitant]
     Active Substance: AMLODIPINE BESYLATE
     Indication: HYPERTENSION
     Dosage: ONCE DAILY AT NIGHT
     Route: 048
  2. VALSARTAN. [Concomitant]
     Active Substance: VALSARTAN
     Indication: HYPERTENSION
     Dosage: 320 MG, UNK
     Route: 048
  3. LANTANON                           /00390602/ [Concomitant]
     Indication: DEPRESSION
     Dosage: 30 MG, ONCE EVERY OTHER DAY
     Route: 048
     Dates: start: 2012
  4. OMEPRAZOLE. [Concomitant]
     Active Substance: OMEPRAZOLE
     Indication: GASTRIC DISORDER
     Dosage: UNK MG, ONCE DAILY AT MORNING
     Route: 048
  5. ATENOLOL. [Concomitant]
     Active Substance: ATENOLOL
     Indication: HYPERTENSION
     Dosage: ONCE A DAILY AT MORNING
     Route: 048
  6. MASTICAL [Concomitant]
     Indication: BONE DECALCIFICATION
     Dosage: ONCE DAILY IN THE AFTERNOON
     Route: 048
  7. SIMVASTATINA CINFA [Concomitant]
     Indication: HYPERCHOLESTEROLAEMIA
     Dosage: 20 UNK, ONCE DAILY AT NIGHT
     Route: 048
  8. VITAMIN D                          /00107901/ [Concomitant]
     Active Substance: ERGOCALCIFEROL
     Indication: BONE DECALCIFICATION
     Dosage: UNK UNK, QMO
     Route: 048
  9. FLU [Concomitant]
     Active Substance: INFLUENZA VIRUS VACCINE
     Indication: ANTIVIRAL PROPHYLAXIS
     Dosage: UNK
     Route: 058
     Dates: start: 201410
  10. PROLIA [Suspect]
     Active Substance: DENOSUMAB
     Indication: OSTEOPOROSIS
     Dosage: UNK UNK, Q6MO
     Route: 058
     Dates: start: 20130505

REACTIONS (14)
  - Gingival pain [Not Recovered/Not Resolved]
  - Oral pain [Not Recovered/Not Resolved]
  - Malaise [Unknown]
  - Urinary incontinence [Not Recovered/Not Resolved]
  - Joint swelling [Not Recovered/Not Resolved]
  - Bone pain [Unknown]
  - Pain in jaw [Recovering/Resolving]
  - Peripheral swelling [Unknown]
  - Skin discolouration [Unknown]
  - Back pain [Unknown]
  - Pain in extremity [Unknown]
  - Urinary tract infection [Recovered/Resolved]
  - Spinal pain [Unknown]
  - Pain [Unknown]

NARRATIVE: CASE EVENT DATE: 201405
